FAERS Safety Report 15343314 (Version 2)
Quarter: 2018Q4

REPORT INFORMATION
  Report Type: Spontaneous
  Country: GB (occurrence: GB)
  Receive Date: 20180903
  Receipt Date: 20181120
  Transmission Date: 20190204
  Serious: Yes (Other)
  Sender: FDA-Public Use
  Company Number: GB-009507513-2012SP020201

PATIENT
  Age: 19 Year
  Sex: Female

DRUGS (1)
  1. IMPLANON [Suspect]
     Active Substance: ETONOGESTREL
     Indication: PRODUCT USED FOR UNKNOWN INDICATION
     Dosage: 68 MG, UNKNOWN
     Route: 059
     Dates: start: 20110705, end: 20111025

REACTIONS (3)
  - Abortion spontaneous [Unknown]
  - Irritable bowel syndrome [Unknown]
  - Inappropriate schedule of product administration [Unknown]
